FAERS Safety Report 21905489 (Version 1)
Quarter: 2023Q1

REPORT INFORMATION
  Report Type: Spontaneous
  Country: US (occurrence: None)
  Receive Date: 20230124
  Receipt Date: 20230124
  Transmission Date: 20230418
  Serious: No
  Sender: FDA-Public Use
  Company Number: None

PATIENT
  Age: 41 Year
  Sex: Male
  Weight: 92.7 kg

DRUGS (5)
  1. METHYLPHENIDATE [Suspect]
     Active Substance: METHYLPHENIDATE
     Indication: Attention deficit hyperactivity disorder
  2. Concerta 18mg + 27mg Ritalin LA 20mg [Concomitant]
  3. Guanfacine 1mg [Concomitant]
  4. Amlodopine/olmesartan 5/20mg [Concomitant]
  5. Flonase Allegra [Concomitant]

REACTIONS (6)
  - Vision blurred [None]
  - Irritability [None]
  - Feeling abnormal [None]
  - Head discomfort [None]
  - Drug ineffective [None]
  - Product substitution issue [None]

NARRATIVE: CASE EVENT DATE: 20230123
